FAERS Safety Report 16260083 (Version 3)
Quarter: 2019Q3

REPORT INFORMATION
  Report Type: Report from Study
  Country: US (occurrence: US)
  Receive Date: 20190501
  Receipt Date: 20190703
  Transmission Date: 20191004
  Serious: Yes (Other)
  Sender: FDA-Public Use
  Company Number: US-BAYER-2019-080485

PATIENT
  Age: 64 Year
  Sex: Female

DRUGS (1)
  1. STIVARGA [Suspect]
     Active Substance: REGORAFENIB
     Indication: COLORECTAL CANCER
     Dosage: 120MG DAILY 3 WEEKS ON 1 WEEK OFF
     Route: 048
     Dates: start: 20190410

REACTIONS (6)
  - Neuropathy peripheral [Recovering/Resolving]
  - Off label use [None]
  - Exercise tolerance decreased [Recovering/Resolving]
  - Chest X-ray abnormal [None]
  - Fatigue [Recovering/Resolving]
  - Blood pressure increased [None]

NARRATIVE: CASE EVENT DATE: 201904
